FAERS Safety Report 8621990-7 (Version None)
Quarter: 2012Q3

REPORT INFORMATION
  Report Type: 
  Country: None (occurrence: None)
  Receive Date: 20120823
  Receipt Date: 20120823
  Transmission Date: 20120928
  Serious: Yes (Other)
  Sender: FDA-Public Use
  Company Number: None

PATIENT
  Sex: Male
  Weight: 63.5036 kg

DRUGS (6)
  1. SINGULAIR [Concomitant]
  2. TRAMADOL HCL [Suspect]
     Indication: MYOCLONUS
     Dosage: 50MG Q8H PO
     Route: 048
     Dates: start: 20120307, end: 20120321
  3. TIZANIDINE HYDROCHLORIDE [Suspect]
     Indication: MYOCLONUS
     Dosage: 4MG Q8H PO
     Route: 048
     Dates: start: 20111115, end: 20120821
  4. FLUTICASONE PROPIONATE [Concomitant]
  5. BENADRYL [Concomitant]
  6. PROVENTIL [Concomitant]

REACTIONS (1)
  - HALLUCINATION, VISUAL [None]
